FAERS Safety Report 5579085-5 (Version None)
Quarter: 2008Q1

REPORT INFORMATION
  Report Type: 
  Country: None (occurrence: None)
  Receive Date: 20080102
  Receipt Date: 20071218
  Transmission Date: 20080703
  Serious: Yes (Other)
  Sender: FDA-Public Use
  Company Number: GB-AMGEN-US253400

PATIENT
  Sex: Female
  Weight: 56 kg

DRUGS (6)
  1. ENBREL [Suspect]
     Indication: RHEUMATOID ARTHRITIS
     Route: 058
     Dates: start: 20061004, end: 20071113
  2. TRAMADOL HCL [Concomitant]
     Dosage: PRN
  3. FOLIC ACID [Concomitant]
     Route: 048
  4. DICLOFENAC SODIUM [Concomitant]
     Dosage: 75MG TWICE DAILY PRN
     Route: 048
  5. METHOTREXATE [Concomitant]
     Indication: RHEUMATOID ARTHRITIS
     Route: 048
  6. SULFASALAZINE [Concomitant]
     Indication: RHEUMATOID ARTHRITIS
     Dosage: 2G DAILY
     Route: 048

REACTIONS (2)
  - ACOUSTIC NEUROMA [None]
  - EAR PAIN [None]
